FAERS Safety Report 10016447 (Version 1)
Quarter: 2014Q1

REPORT INFORMATION
  Report Type: Spontaneous
  Country: PL (occurrence: PL)
  Receive Date: 20140317
  Receipt Date: 20140317
  Transmission Date: 20141002
  Serious: Yes (Hospitalization, Other)
  Sender: FDA-Public Use
  Company Number: CHPA2014PL003932

PATIENT
  Age: 33 Year
  Sex: Female
  Weight: 60 kg

DRUGS (5)
  1. THERAFLU EXTRAGRIP [Suspect]
     Indication: NASOPHARYNGITIS
     Dosage: 1 DF, ONCE OR TWICE A DAY
     Route: 048
  2. RUTINOSCORBIN [Concomitant]
     Dosage: 4 TO 5 DF, QD
  3. POLOPIRYNA S [Concomitant]
     Dosage: 2 DF, QD
  4. POLOPIRYNA S [Concomitant]
     Dosage: 1 DF, QD
  5. AMOTAKS [Concomitant]
     Dosage: 1 DF, QD

REACTIONS (6)
  - Renal impairment [Unknown]
  - Blood urea increased [Unknown]
  - Blood creatinine increased [Unknown]
  - Micturition disorder [Unknown]
  - Oedema peripheral [Unknown]
  - Musculoskeletal discomfort [Unknown]
